FAERS Safety Report 6389064-6 (Version None)
Quarter: 2009Q4

REPORT INFORMATION
  Report Type: 
  Country: None (occurrence: None)
  Receive Date: 20091006
  Receipt Date: 20070608
  Transmission Date: 20100525
  Serious: Yes (Hospitalization, Other)
  Sender: FDA-Public Use
  Company Number: US-ASTRAZENECA-2006UW23164

PATIENT
  Age: 15118 Day
  Sex: Male
  Weight: 106.6 kg

DRUGS (12)
  1. SEROQUEL [Suspect]
     Indication: DEPRESSION
     Dosage: 300-600 MG
     Route: 048
     Dates: start: 20030703
  2. SEROQUEL [Suspect]
     Route: 048
     Dates: start: 20030610
  3. HALDOL [Concomitant]
  4. CYMBALTA [Concomitant]
     Route: 048
     Dates: start: 20050101
  5. TRAZODONE [Concomitant]
     Dates: start: 20060225
  6. TEGRETOL [Concomitant]
     Dosage: 400-600 MG
     Route: 048
     Dates: start: 20050101
  7. TRAZODONE HCL [Concomitant]
     Dosage: 200-400 MG
     Route: 048
     Dates: start: 20030708
  8. GABAPENTIN [Concomitant]
     Dosage: 300-900 MG
     Route: 048
     Dates: start: 20050101
  9. LEXAPRO [Concomitant]
     Dosage: 10-20 MG
     Route: 048
     Dates: start: 20030703
  10. TRIAMTERENE AND HYDROCHLOROTHIAZIDE [Concomitant]
     Dosage: 75/50 STRENGTH
     Route: 048
     Dates: start: 20050101, end: 20050812
  11. METOPROLOL TARTRATE [Concomitant]
     Dosage: 100-200 MG
     Route: 048
     Dates: start: 20030101, end: 20050812
  12. ALPRAZOLAM [Concomitant]
     Indication: ANXIETY
     Dosage: 0.25-1.50 MG
     Route: 048
     Dates: start: 20030703

REACTIONS (9)
  - BLOOD CHOLESTEROL INCREASED [None]
  - COMA [None]
  - DIABETES MELLITUS [None]
  - DIABETES MELLITUS INADEQUATE CONTROL [None]
  - DIABETIC COMA [None]
  - HYPERLIPIDAEMIA [None]
  - NEUROPATHY PERIPHERAL [None]
  - TARDIVE DYSKINESIA [None]
  - TYPE 1 DIABETES MELLITUS [None]
